FAERS Safety Report 16528943 (Version 2)
Quarter: 2019Q3

REPORT INFORMATION
  Report Type: Report from Study
  Country: BR (occurrence: BR)
  Receive Date: 20190703
  Receipt Date: 20190903
  Transmission Date: 20191004
  Serious: Yes (Hospitalization)
  Sender: FDA-Public Use
  Company Number: PHHY2018BR059701

PATIENT
  Age: 45 Year
  Sex: Female
  Weight: 48 kg

DRUGS (6)
  1. COSENTYX [Suspect]
     Active Substance: SECUKINUMAB
     Dosage: UNK
     Route: 058
     Dates: start: 20190116
  2. COSENTYX [Suspect]
     Active Substance: SECUKINUMAB
     Dosage: UNK
     Route: 065
     Dates: start: 20190804
  3. COSENTYX [Suspect]
     Active Substance: SECUKINUMAB
     Dosage: UNK
     Route: 058
     Dates: start: 20181016
  4. PACO [Suspect]
     Active Substance: ACETAMINOPHEN\CODEINE PHOSPHATE
     Indication: INTERVERTEBRAL DISC PROTRUSION
     Route: 065
  5. COSENTYX [Suspect]
     Active Substance: SECUKINUMAB
     Indication: PSORIATIC ARTHROPATHY
     Dosage: 300 MG, QMO
     Route: 058
     Dates: start: 20171021
  6. COSENTYX [Suspect]
     Active Substance: SECUKINUMAB
     Dosage: UNK
     Route: 058
     Dates: start: 20180218

REACTIONS (12)
  - Malaise [Unknown]
  - Conjunctivitis [Recovering/Resolving]
  - Intervertebral disc protrusion [Unknown]
  - Cholecystitis [Unknown]
  - Weight decreased [Recovering/Resolving]
  - Skin injury [Recovering/Resolving]
  - Dizziness [Unknown]
  - Psoriasis [Recovering/Resolving]
  - Drug hypersensitivity [Unknown]
  - Abdominal pain upper [Unknown]
  - Drug hypersensitivity [Recovered/Resolved]
  - Skin lesion [Recovering/Resolving]

NARRATIVE: CASE EVENT DATE: 2018
